FAERS Safety Report 4469184-3 (Version None)
Quarter: 2004Q4

REPORT INFORMATION
  Report Type: 
  Country: None (occurrence: None)
  Receive Date: 20041005
  Receipt Date: 20041005
  Transmission Date: 20050328
  Serious: Yes (Other)
  Sender: FDA-Public Use
  Company Number: None

PATIENT
  Age: 54 Year
  Sex: Female
  Weight: 51.7101 kg

DRUGS (3)
  1. PAXIL CR [Suspect]
     Indication: PANIC ATTACK
     Dosage: 1 TABLET EVERY DAY
     Dates: start: 20040301, end: 20040927
  2. ATENOLOL [Concomitant]
  3. KLONPIN [Concomitant]

REACTIONS (6)
  - CONVULSION [None]
  - DECREASED ACTIVITY [None]
  - DRUG WITHDRAWAL SYNDROME [None]
  - IMPAIRED WORK ABILITY [None]
  - INFLUENZA LIKE ILLNESS [None]
  - PARAESTHESIA [None]
